FAERS Safety Report 9694254 (Version 2)
Quarter: 2014Q1

REPORT INFORMATION
  Report Type: Spontaneous
  Country: US (occurrence: US)
  Receive Date: 20131118
  Receipt Date: 20140109
  Transmission Date: 20141002
  Serious: No
  Sender: FDA-Public Use
  Company Number: US-PFIZER INC-2013328429

PATIENT
  Age: 59 Year
  Sex: Male
  Weight: 90.7 kg

DRUGS (5)
  1. LYRICA [Suspect]
     Indication: BACK PAIN
     Dosage: 50 MG, 3X/DAY
     Dates: start: 20131114
  2. LYRICA [Suspect]
     Indication: NECK PAIN
  3. CYMBALTA [Concomitant]
     Dosage: 60 MG, DAILY
  4. MEDICAL MARIJUANA [Concomitant]
     Indication: BACK PAIN
     Dosage: UNK, 1X/DAY
     Dates: start: 201205
  5. MEDICAL MARIJUANA [Concomitant]
     Indication: PAIN IN EXTREMITY

REACTIONS (1)
  - Dizziness [Recovered/Resolved]
